FAERS Safety Report 8302823-5 (Version None)
Quarter: 2012Q2

REPORT INFORMATION
  Report Type: 
  Country: None (occurrence: None)
  Receive Date: 20120420
  Receipt Date: 20120411
  Transmission Date: 20120825
  Serious: Yes (Other)
  Sender: FDA-Public Use
  Company Number: JP-VALEANT-2012VX001759

PATIENT

DRUGS (3)
  1. DOCETAXEL [Suspect]
     Route: 065
  2. CISPLATIN [Suspect]
     Route: 065
  3. FLUOROURACIL [Suspect]
     Route: 065

REACTIONS (1)
  - WOUND INFECTION [None]
